FAERS Safety Report 9647893 (Version 1)
Quarter: 2013Q4

REPORT INFORMATION
  Report Type: Spontaneous
  Country: US (occurrence: US)
  Receive Date: 20131028
  Receipt Date: 20131028
  Transmission Date: 20140711
  Serious: No
  Sender: FDA-Public Use
  Company Number: US-PFIZER INC-2013302190

PATIENT
  Age: 77 Year
  Sex: Female
  Weight: 67.57 kg

DRUGS (2)
  1. ADVIL [Suspect]
     Indication: NECK PAIN
     Dosage: UNK, FOUR TIMES A DAY
     Route: 048
     Dates: start: 20131018
  2. ADVIL [Suspect]
     Indication: BACK PAIN

REACTIONS (1)
  - Nausea [Unknown]
